FAERS Safety Report 19884508 (Version 1)
Quarter: 2021Q3

REPORT INFORMATION
  Report Type: Spontaneous
  Country: US (occurrence: US)
  Receive Date: 20210927
  Receipt Date: 20210927
  Transmission Date: 20211014
  Serious: No
  Sender: FDA-Public Use
  Company Number: US-CELLTRION INC.-2021US002859

PATIENT

DRUGS (5)
  1. INFLIXIMAB (UNKNOWN) [Suspect]
     Active Substance: INFLIXIMAB
     Dosage: 900 MG EVERY 4 WEEKS
     Route: 042
  2. PREDNISONE. [Suspect]
     Active Substance: PREDNISONE
     Indication: SERPIGINOUS CHOROIDITIS
     Dosage: 80 MG DAILY WITH TAPER
     Route: 048
  3. INFLIXIMAB (UNKNOWN) [Suspect]
     Active Substance: INFLIXIMAB
     Dosage: 600 MG EVERY 4 WEEKS
     Route: 042
  4. MYCOPHENOLATE MOFETIL. [Suspect]
     Active Substance: MYCOPHENOLATE MOFETIL
     Indication: SERPIGINOUS CHOROIDITIS
     Dosage: 1 G, DAILY
  5. INFLIXIMAB (UNKNOWN) [Suspect]
     Active Substance: INFLIXIMAB
     Indication: SERPIGINOUS CHOROIDITIS
     Dosage: STARTED ON 300 MG IV EVERY FOUR WEEKS
     Route: 042

REACTIONS (2)
  - Liver function test increased [Unknown]
  - Off label use [Unknown]
